FAERS Safety Report 4684872-1 (Version None)
Quarter: 2005Q2

REPORT INFORMATION
  Report Type: 
  Country: None (occurrence: None)
  Receive Date: 20050327
  Receipt Date: 20050316
  Transmission Date: 20051028
  Serious: No
  Sender: FDA-Public Use
  Company Number: PHEH2005US03226

PATIENT
  Age: 37 Year
  Sex: Female

DRUGS (6)
  1. ZELNORM [Suspect]
     Indication: CONSTIPATION
     Dosage: 6 MG, BID, ORAL
     Route: 048
     Dates: start: 20050309
  2. THYROID TAB [Concomitant]
  3. SYNTHROID [Concomitant]
  4. HYDROCHLOROTHIAZIDE [Concomitant]
  5. AMITRIPTYLINE HCL [Concomitant]
  6. PROTONIX [Concomitant]

REACTIONS (2)
  - MICTURITION URGENCY [None]
  - POLLAKIURIA [None]
